FAERS Safety Report 9029596 (Version 2)
Quarter: 2013Q2

REPORT INFORMATION
  Report Type: Spontaneous
  Country: US (occurrence: US)
  Receive Date: 20130125
  Receipt Date: 20130401
  Transmission Date: 20140414
  Serious: Yes (Hospitalization)
  Sender: FDA-Public Use
  Company Number: US-BAYER-2013-010105

PATIENT
  Age: 44 Year
  Sex: Female
  Weight: 70.3 kg

DRUGS (1)
  1. OCELLA [Suspect]
     Dosage: UNK
     Dates: start: 1999, end: 2009

REACTIONS (9)
  - Thrombosis [None]
  - Thrombosis [None]
  - Injury [None]
  - Pain [None]
  - General physical health deterioration [None]
  - Anxiety [None]
  - Emotional distress [None]
  - Anhedonia [None]
  - Pain [None]
